FAERS Safety Report 6557218-1 (Version None)
Quarter: 2010Q1

REPORT INFORMATION
  Report Type: 
  Country: None (occurrence: None)
  Receive Date: 20100127
  Receipt Date: 20100127
  Transmission Date: 20100710
  Serious: Yes (Other)
  Sender: FDA-Public Use
  Company Number: None

PATIENT
  Age: 25 Year
  Sex: Female
  Weight: 88.4514 kg

DRUGS (1)
  1. YAZ [Suspect]
     Dosage: 1 DAY PO
     Route: 048
     Dates: start: 20091001, end: 20100101

REACTIONS (1)
  - HEADACHE [None]
